FAERS Safety Report 22528913 (Version 1)
Quarter: 2023Q2

REPORT INFORMATION
  Report Type: Spontaneous
  Country: US (occurrence: US)
  Receive Date: 20230607
  Receipt Date: 20230607
  Transmission Date: 20230721
  Serious: Yes (Life-Threatening, Hospitalization, Other)
  Sender: FDA-Public Use
  Company Number: US-BAXTER-2023BAX023205

PATIENT

DRUGS (1)
  1. POTASSIUM CHLORIDE [Suspect]
     Active Substance: POTASSIUM CHLORIDE
     Dosage: 40 MEQ IVPB WAS INFUSED OVER 15 MINUTES AT AN UNSPECIFIED FREQUENCY
     Route: 042

REACTIONS (1)
  - Cardiac arrest [Recovering/Resolving]
